FAERS Safety Report 5610944-0 (Version None)
Quarter: 2008Q1

REPORT INFORMATION
  Report Type: 
  Country: None (occurrence: None)
  Receive Date: 20080128
  Receipt Date: 20080115
  Transmission Date: 20080703
  Serious: Yes (Death, Hospitalization)
  Sender: FDA-Public Use
  Company Number: CLOF-10471

PATIENT
  Age: 70 Year
  Sex: Female

DRUGS (32)
  1. CLOFARABINE (CLOFARABINE) 30MG/M2 [Suspect]
     Indication: ACUTE MYELOID LEUKAEMIA
     Dosage: 30 MG/M2, QDX5, INTRAVENOUS
     Route: 042
     Dates: start: 20070309, end: 20070313
  2. BENADRYL [Concomitant]
  3. AMBIEN (ZOLPIDME TARTRATE) [Concomitant]
  4. ACYCLOVIR [Concomitant]
  5. ALLOPURINOL [Concomitant]
  6. AMLODIPINE [Concomitant]
  7. CALCIUM GLUCONATE [Concomitant]
  8. CEFEPIME [Concomitant]
  9. DOCUSATE (DOCUSATE) [Concomitant]
  10. FAMOTIDINE [Concomitant]
  11. FUROSEMIDE [Concomitant]
  12. HYDROCHLOROTHIAZIDE [Concomitant]
  13. HYDROCORTISONE (HYDROCORTISONE) [Concomitant]
  14. HYDROXYUREA [Concomitant]
  15. LEVOTHYROXINE SODIUM [Concomitant]
  16. LISINOPRIL [Concomitant]
  17. LORAZEPAM [Concomitant]
  18. MAGNESIUM OXIDE (MAGNESIUM OXIDE) [Concomitant]
  19. MAGNESIUM SULFATE [Concomitant]
  20. METOPROLOL TARTRATE [Concomitant]
  21. MULTIVITAMINS AND IRON [Concomitant]
  22. ONDANSETRON HCL [Concomitant]
  23. PANTOPRAZOLE SODIUM [Concomitant]
  24. PHENYTOIN [Concomitant]
  25. POTASSIUM CHLORIDE [Concomitant]
  26. SENNA [Concomitant]
  27. ACETAMINOPHEN [Concomitant]
  28. ALBUTEROL [Concomitant]
  29. ALBUTEROL W(IPRATROPIUM, SALBUTAMOL) [Concomitant]
  30. IPRATROPIUM BROMIDE [Concomitant]
  31. PERCOCET [Concomitant]
  32. DEXTROSE [Concomitant]

REACTIONS (19)
  - ACIDOSIS [None]
  - ACUTE RESPIRATORY DISTRESS SYNDROME [None]
  - BRONCHITIS [None]
  - CONFUSIONAL STATE [None]
  - DEPRESSED LEVEL OF CONSCIOUSNESS [None]
  - DISORIENTATION [None]
  - ENCEPHALOPATHY [None]
  - FALL [None]
  - HYPONATRAEMIA [None]
  - HYPOXIA [None]
  - MELAENA [None]
  - MENTAL STATUS CHANGES [None]
  - PNEUMONIA [None]
  - RENAL FAILURE ACUTE [None]
  - SINUS TACHYCARDIA [None]
  - SOMNOLENCE [None]
  - STARING [None]
  - STATUS EPILEPTICUS [None]
  - SUPRAVENTRICULAR EXTRASYSTOLES [None]
